FAERS Safety Report 15990898 (Version 2)
Quarter: 2022Q2

REPORT INFORMATION
  Report Type: Spontaneous
  Country: US (occurrence: US)
  Receive Date: 20190221
  Receipt Date: 20220420
  Transmission Date: 20220721
  Serious: Yes (Death, Hospitalization)
  Sender: FDA-Public Use
  Company Number: US-TEVA-2019-US-1013732

PATIENT
  Age: 58 Year
  Sex: Female

DRUGS (10)
  1. HYDROCORTISONE [Suspect]
     Active Substance: HYDROCORTISONE
     Indication: Septic shock
     Dosage: STRESS DOSE; FROM PBD 35 TO PBD 74
     Route: 065
  2. HEPARIN [Suspect]
     Active Substance: HEPARIN SODIUM
     Dosage: LOW-INTENSITY HEPARIN DRIP FOR APPROXIMATELY 12 HOURS
     Route: 041
  3. ISAVUCONAZOLE [Suspect]
     Active Substance: ISAVUCONAZOLE
     Indication: Mucormycosis
     Route: 065
  4. AMPHOTERICIN B [Suspect]
     Active Substance: AMPHOTERICIN B
     Indication: Mucormycosis
     Dosage: FROM PBD 43 TO PBD 72
     Route: 065
  5. ANIDULAFUNGIN [Suspect]
     Active Substance: ANIDULAFUNGIN
     Indication: Mucormycosis
     Dosage: FROM PBD 43 TO PBD 72
     Route: 065
  6. OXANDROLONE [Suspect]
     Active Substance: OXANDROLONE
     Indication: Product used for unknown indication
     Dosage: FROM PBD 20 TO PBD 73
     Route: 065
  7. TPN [Suspect]
     Active Substance: AMINO ACIDS\DEXTROSE\ELECTROLYTES NOS\SOYBEAN OIL
     Indication: Product used for unknown indication
     Dosage: FROM PBD 20 TO PBD 73
     Route: 065
  8. MEROPENEM [Concomitant]
     Active Substance: MEROPENEM
     Indication: Enterobacter infection
     Route: 065
  9. AMIKACIN [Concomitant]
     Active Substance: AMIKACIN
     Indication: Enterobacter infection
     Route: 065
  10. FRESH FROZEN PLASMA [Concomitant]
     Active Substance: HUMAN PLASMA
     Route: 065

REACTIONS (13)
  - Haemorrhage intracranial [Unknown]
  - Retroperitoneal haematoma [Unknown]
  - Haemoperitoneum [Unknown]
  - Ischaemic hepatitis [Recovering/Resolving]
  - Acute hepatic failure [Recovering/Resolving]
  - Herpes simplex hepatitis [Fatal]
  - Herpes simplex [Fatal]
  - Ophthalmic herpes simplex [Fatal]
  - Coagulopathy [Fatal]
  - Hepatic necrosis [Unknown]
  - Hyperlactacidaemia [Unknown]
  - Metabolic acidosis [Unknown]
  - Shock [Recovering/Resolving]
